FAERS Safety Report 7883914-X (Version None)
Quarter: 2011Q4

REPORT INFORMATION
  Report Type: 
  Country: None (occurrence: None)
  Receive Date: 20111102
  Receipt Date: 20111021
  Transmission Date: 20120403
  Serious: No
  Sender: FDA-Public Use
  Company Number: US-JNJFOC-20110907334

PATIENT
  Sex: Female
  Weight: 71.22 kg

DRUGS (3)
  1. DEPAKOTE [Concomitant]
     Indication: SCHIZOAFFECTIVE DISORDER
     Route: 048
     Dates: start: 20110202
  2. INVEGA SUSTENNA [Suspect]
     Route: 030
     Dates: start: 20110822, end: 20110101
  3. INVEGA SUSTENNA [Suspect]
     Indication: SCHIZOAFFECTIVE DISORDER
     Route: 030
     Dates: start: 20110815, end: 20110101

REACTIONS (2)
  - INJECTION SITE SWELLING [None]
  - INJECTION SITE INDURATION [None]
